FAERS Safety Report 6358559-3 (Version None)
Quarter: 2009Q3

REPORT INFORMATION
  Report Type: 
  Country: None (occurrence: None)
  Receive Date: 20090914
  Receipt Date: 20090828
  Transmission Date: 20100115
  Serious: Yes (Other)
  Sender: FDA-Public Use
  Company Number: DSA_34025_2009

PATIENT
  Sex: Female

DRUGS (5)
  1. APLENZIN - BUPROPION HYDROBROMIDE [Suspect]
     Indication: MAJOR DEPRESSION
     Dosage: 522 MG QD ORAL
     Route: 048
     Dates: end: 20090430
  2. PAXIL [Concomitant]
  3. DEPAKOTE ER [Concomitant]
  4. WELLBUTRIN XL [Concomitant]
  5. CLONAZEPAM [Concomitant]

REACTIONS (8)
  - ANXIETY [None]
  - APATHY [None]
  - BIPOLAR DISORDER [None]
  - DECREASED APPETITE [None]
  - DEPRESSION [None]
  - INITIAL INSOMNIA [None]
  - SOMNOLENCE [None]
  - STEVENS-JOHNSON SYNDROME [None]
